FAERS Safety Report 5054374-1 (Version None)
Quarter: 2006Q3

REPORT INFORMATION
  Report Type: 
  Country: None (occurrence: None)
  Receive Date: 20060713
  Receipt Date: 20060707
  Transmission Date: 20061208
  Serious: Yes (Other)
  Sender: FDA-Public Use
  Company Number: 007963

PATIENT
  Sex: Female

DRUGS (5)
  1. MEDROXYPROGESTERONE ACETATE [Suspect]
     Dosage: ORAL
     Route: 048
     Dates: start: 19930101, end: 20030101
  2. PREMARIN [Suspect]
     Dosage: ORAL
     Route: 048
     Dates: start: 19930101, end: 20030101
  3. PREMPRO [Suspect]
     Dosage: ORAL
     Route: 048
     Dates: start: 19930101, end: 20030101
  4. PROVERA [Suspect]
     Dosage: ORAL
     Route: 048
     Dates: start: 19930101, end: 20030101
  5. ESTRATAB [Suspect]
     Dosage: ORAL
     Route: 048
     Dates: start: 19930101, end: 20030101

REACTIONS (1)
  - BREAST CANCER [None]
